FAERS Safety Report 12076191 (Version 2)
Quarter: 2016Q2

REPORT INFORMATION
  Report Type: Spontaneous
  Country: US (occurrence: US)
  Receive Date: 20160215
  Receipt Date: 20160422
  Transmission Date: 20160815
  Serious: No
  Sender: FDA-Public Use
  Company Number: US-LEO PHARMA-240062

PATIENT
  Age: 30 Year
  Sex: Female

DRUGS (1)
  1. PICATO [Suspect]
     Active Substance: INGENOL MEBUTATE
     Indication: SKIN PAPILLOMA
     Route: 061
     Dates: start: 20160206

REACTIONS (5)
  - Application site swelling [Recovering/Resolving]
  - Drug administered at inappropriate site [Unknown]
  - Application site discolouration [Not Recovered/Not Resolved]
  - Product use issue [Unknown]
  - Application site vesicles [Recovered/Resolved]

NARRATIVE: CASE EVENT DATE: 20160206
